FAERS Safety Report 21908192 (Version 1)
Quarter: 2023Q1

REPORT INFORMATION
  Report Type: Spontaneous
  Country: US (occurrence: US)
  Receive Date: 20230125
  Receipt Date: 20230125
  Transmission Date: 20230417
  Serious: No
  Sender: FDA-Public Use
  Company Number: US-Covis Pharma GmbH-2022COV22816

PATIENT
  Age: 78 Year
  Sex: Male

DRUGS (1)
  1. FERAHEME [Suspect]
     Active Substance: FERUMOXYTOL NON-STOICHIOMETRIC MAGNETITE
     Indication: Product used for unknown indication
     Dosage: 60 MG RECEIVED ON 28-NOV-2022 AND REMAINING 450 MG RECEIVED ON 01-DEC-2022 FOR A TOTAL 510 MG DOSE.
     Route: 065
     Dates: start: 20221128, end: 20221201

REACTIONS (1)
  - Off label use [Unknown]

NARRATIVE: CASE EVENT DATE: 20221128
